FAERS Safety Report 8023624-1 (Version None)
Quarter: 2012Q1

REPORT INFORMATION
  Report Type: 
  Country: None (occurrence: None)
  Receive Date: 20120104
  Receipt Date: 20120104
  Transmission Date: 20120608
  Serious: No
  Sender: FDA-Public Use
  Company Number: None

PATIENT

DRUGS (1)
  1. NEURONTIN [Suspect]

REACTIONS (8)
  - INCORRECT ROUTE OF DRUG ADMINISTRATION [None]
  - CHOKING [None]
  - WRONG TECHNIQUE IN DRUG USAGE PROCESS [None]
  - OESOPHAGEAL ULCER [None]
  - PRODUCT CONTAMINATION [None]
  - CONDITION AGGRAVATED [None]
  - PRODUCT TAMPERING [None]
  - VICTIM OF ABUSE [None]
